FAERS Safety Report 9580607 (Version 1)
Quarter: 2013Q3

REPORT INFORMATION
  Report Type: Spontaneous
  Country: US (occurrence: None)
  Receive Date: 20130916
  Receipt Date: 20130916
  Transmission Date: 20140515
  Serious: Yes (Other)
  Sender: FDA-Public Use
  Company Number: JPI-P-030953

PATIENT
  Age: 30 Year
  Sex: Male
  Weight: 101.61 kg

DRUGS (5)
  1. XYREM [Suspect]
     Indication: CATAPLEXY
     Route: 048
     Dates: start: 20070301
  2. MODAFINIL [Concomitant]
  3. ARMODAFINIL [Concomitant]
  4. METHYLPHENIDATE [Concomitant]
  5. FLUOXETINE [Concomitant]

REACTIONS (3)
  - Sleep apnoea syndrome [None]
  - Lethargy [None]
  - Snoring [None]
